FAERS Safety Report 5448097-4 (Version None)
Quarter: 2007Q3

REPORT INFORMATION
  Report Type: 
  Country: None (occurrence: None)
  Receive Date: 20070801
  Receipt Date: 20070530
  Transmission Date: 20080115
  Serious: No
  Sender: FDA-Public Use
  Company Number: 2007-US-000230

PATIENT
  Sex: Female

DRUGS (2)
  1. INCRELEX [Suspect]
     Indication: BODY HEIGHT BELOW NORMAL
     Dosage: 80 UG/KG, BID, SUBCUTANEOUS
     Route: 058
     Dates: start: 20070301, end: 20070323
  2. DEPOT LUPRON [Concomitant]

REACTIONS (1)
  - INJECTION SITE URTICARIA [None]
